FAERS Safety Report 6172266-1 (Version None)
Quarter: 2009Q2

REPORT INFORMATION
  Report Type: 
  Country: None (occurrence: None)
  Receive Date: 20090429
  Receipt Date: 20090422
  Transmission Date: 20091009
  Serious: Yes (Hospitalization)
  Sender: FDA-Public Use
  Company Number: US-GILEAD-2009-0021623

PATIENT
  Sex: Female
  Weight: 57.204 kg

DRUGS (1)
  1. LETAIRIS [Suspect]
     Indication: COR PULMONALE
     Route: 048
     Dates: start: 20070511

REACTIONS (1)
  - SARCOIDOSIS [None]
